FAERS Safety Report 24454940 (Version 2)
Quarter: 2024Q4

REPORT INFORMATION
  Report Type: Report from Study
  Country: IN (occurrence: IN)
  Receive Date: 20241017
  Receipt Date: 20241018
  Transmission Date: 20250115
  Serious: No
  Sender: ROCHE
  Company Number: IN-ROCHE-3477276

PATIENT

DRUGS (21)
  1. RITUXIMAB [Suspect]
     Active Substance: RITUXIMAB
     Indication: Neoplasm malignant
     Route: 042
  2. BEVACIZUMAB [Suspect]
     Active Substance: BEVACIZUMAB
     Indication: Neoplasm malignant
     Route: 042
  3. TRASTUZUMAB [Suspect]
     Active Substance: TRASTUZUMAB
     Indication: Neoplasm malignant
     Route: 042
  4. CISPLATIN [Concomitant]
     Active Substance: CISPLATIN
  5. ETOPOSIDE [Concomitant]
     Active Substance: ETOPOSIDE
  6. DOXORUBICIN [Concomitant]
     Active Substance: DOXORUBICIN
  7. MESNA [Concomitant]
     Active Substance: MESNA
  8. IFOSFAMIDE [Concomitant]
     Active Substance: IFOSFAMIDE
  9. OXALIPLATIN [Concomitant]
     Active Substance: OXALIPLATIN
  10. BLEOMYCIN [Concomitant]
     Active Substance: BLEOMYCIN SULFATE
  11. PACLITAXEL [Concomitant]
     Active Substance: PACLITAXEL
  12. CARBOPLATIN [Concomitant]
     Active Substance: CARBOPLATIN
  13. DOCETAXEL [Concomitant]
     Active Substance: DOCETAXEL
  14. VINCRISTINE [Concomitant]
     Active Substance: VINCRISTINE
  15. CYCLOPHOSPHAMIDE [Concomitant]
     Active Substance: CYCLOPHOSPHAMIDE
  16. FLUOROURACIL [Concomitant]
     Active Substance: FLUOROURACIL
  17. EPIRUBICIN [Concomitant]
     Active Substance: EPIRUBICIN
  18. ZOLEDRONIC ACID [Concomitant]
     Active Substance: ZOLEDRONIC ACID
  19. PEMETREXED [Concomitant]
     Active Substance: PEMETREXED
  20. GEMCITABINE [Concomitant]
     Active Substance: GEMCITABINE
  21. DACARBAZINE [Concomitant]
     Active Substance: DACARBAZINE

REACTIONS (1)
  - Phlebitis [Unknown]
